FAERS Safety Report 4859834-1 (Version None)
Quarter: 2005Q4

REPORT INFORMATION
  Report Type: 
  Country: None (occurrence: None)
  Receive Date: 20051219
  Receipt Date: 20051214
  Transmission Date: 20060501
  Serious: Yes (Death, Life-Threatening, Hospitalization)
  Sender: FDA-Public Use
  Company Number: RU-GLAXOSMITHKLINE-B0403950A

PATIENT
  Age: 60 Year
  Sex: Female

DRUGS (2)
  1. HYCAMTIN [Suspect]
     Indication: OVARIAN CANCER
     Dosage: 2MG PER DAY
     Route: 042
     Dates: start: 20051125, end: 20051202
  2. LENOGRASTIM [Concomitant]
     Indication: NEUTROPENIA
     Dates: start: 20051128, end: 20051209

REACTIONS (3)
  - DISEASE PROGRESSION [None]
  - ENCEPHALOPATHY [None]
  - NEUTROPENIA [None]
